FAERS Safety Report 8117151-0 (Version None)
Quarter: 2012Q1

REPORT INFORMATION
  Report Type: 
  Country: None (occurrence: None)
  Receive Date: 20120206
  Receipt Date: 20120131
  Transmission Date: 20120608
  Serious: Yes (Death)
  Sender: FDA-Public Use
  Company Number: KR-ASTRAZENECA-2012SE06571

PATIENT
  Age: 14 Year
  Sex: Female

DRUGS (3)
  1. MIDAZOLAM [Concomitant]
  2. PROPOFOL [Suspect]
     Route: 042
  3. PROPOFOL [Suspect]
     Route: 041

REACTIONS (1)
  - PROPOFOL INFUSION SYNDROME [None]
